FAERS Safety Report 5108298-1 (Version None)
Quarter: 2006Q3

REPORT INFORMATION
  Report Type: 
  Country: None (occurrence: None)
  Receive Date: 20060914
  Receipt Date: 20060914
  Transmission Date: 20061208
  Serious: Yes (Hospitalization)
  Sender: FDA-Public Use
  Company Number: None

PATIENT
  Age: 56 Year
  Sex: Male
  Weight: 100 kg

DRUGS (20)
  1. DOXIL [Suspect]
     Indication: MULTIPLE MYELOMA
     Dosage: 30 MG/M2 ONCE /CYCLE IV
     Route: 042
     Dates: start: 20060114, end: 20060422
  2. VELCADE [Suspect]
     Indication: MULTIPLE MYELOMA
     Dosage: 1.3 MG /M2 DAYS 1, 4, 8, 11 IV
     Route: 042
     Dates: start: 20060111, end: 20060426
  3. VANCOMYCIN [Concomitant]
  4. VORICONAZOLE [Concomitant]
  5. ACYCLOVIR [Concomitant]
  6. LOVOFLOXCIN [Concomitant]
  7. ATOVAQUONE [Concomitant]
  8. NEUPOGEN [Concomitant]
  9. ANOGITERICIN B LIPID-COMPLEX [Concomitant]
  10. METOPROLOL [Concomitant]
  11. ZOLPIDEM TARTRATE [Concomitant]
  12. BACTRIM DS [Concomitant]
  13. HEPARIN [Concomitant]
  14. ASPRIRIN [Concomitant]
  15. ENOXAPARIN SODIUM [Concomitant]
  16. PANTOPRAZOLE SODIUM [Concomitant]
  17. TOBRAMYCIN [Concomitant]
  18. PIPERACILLIN AND TAZOBACTAM [Concomitant]
  19. FLUCONAZOLE [Concomitant]
  20. MIRTAZAPINE [Concomitant]

REACTIONS (5)
  - CONFUSIONAL STATE [None]
  - DEEP VEIN THROMBOSIS [None]
  - OXYGEN SATURATION DECREASED [None]
  - PULMONARY ALVEOLAR HAEMORRHAGE [None]
  - PYREXIA [None]
